FAERS Safety Report 10565400 (Version 2)
Quarter: 2014Q4

REPORT INFORMATION
  Report Type: Spontaneous
  Country: US (occurrence: US)
  Receive Date: 20141105
  Receipt Date: 20141222
  Transmission Date: 20150529
  Serious: Yes (Hospitalization, Other)
  Sender: FDA-Public Use
  Company Number: US-ELI_LILLY_AND_COMPANY-US201410010575

PATIENT
  Age: 59 Year
  Sex: Male
  Weight: 87.7 kg

DRUGS (2)
  1. IRINOTECAN [Suspect]
     Active Substance: IRINOTECAN
  2. CYRAMZA [Suspect]
     Active Substance: RAMUCIRUMAB
     Indication: ADENOCARCINOMA GASTRIC
     Dosage: 690 MG, CYCLICAL
     Route: 042
     Dates: start: 20140725, end: 20140919

REACTIONS (1)
  - Gastrointestinal haemorrhage [Not Recovered/Not Resolved]
